FAERS Safety Report 5862675-X (Version None)
Quarter: 2008Q3

REPORT INFORMATION
  Report Type: 
  Country: None (occurrence: None)
  Receive Date: 20080827
  Receipt Date: 20080827
  Transmission Date: 20090109
  Serious: Yes (Hospitalization)
  Sender: FDA-Public Use
  Company Number: None

PATIENT
  Age: 73 Year
  Sex: Female
  Weight: 73.9363 kg

DRUGS (1)
  1. AVELOX [Suspect]
     Indication: SINUSITIS
     Dosage: ONE PILL PER DAY
     Dates: start: 20080819, end: 20080820

REACTIONS (7)
  - BACK PAIN [None]
  - ERYTHEMA [None]
  - FATIGUE [None]
  - INSOMNIA [None]
  - JOINT SWELLING [None]
  - OEDEMA PERIPHERAL [None]
  - SKIN WARM [None]
